FAERS Safety Report 24009805 (Version 1)
Quarter: 2024Q2

REPORT INFORMATION
  Report Type: Spontaneous
  Country: US (occurrence: None)
  Receive Date: 20240624
  Receipt Date: 20240624
  Transmission Date: 20240716
  Serious: Yes (Hospitalization)
  Sender: FDA-Public Use
  Company Number: None

PATIENT
  Sex: Male

DRUGS (3)
  1. PULMOZYME [Suspect]
     Active Substance: DORNASE ALFA
     Indication: Bronchiectasis
     Dosage: 1MG BID INHALATION?
     Route: 055
     Dates: start: 202107
  2. MORPHINE [Suspect]
     Active Substance: MORPHINE
  3. ELAPRASE [Concomitant]

REACTIONS (4)
  - Gastrointestinal tube insertion [None]
  - Bloody discharge [None]
  - Drainage [None]
  - Impaired healing [None]
